FAERS Safety Report 6483524-5 (Version None)
Quarter: 2009Q4

REPORT INFORMATION
  Report Type: 
  Country: None (occurrence: None)
  Receive Date: 20091209
  Receipt Date: 20091203
  Transmission Date: 20100525
  Serious: Yes (Other)
  Sender: FDA-Public Use
  Company Number: DE-ROCHE-667190

PATIENT
  Sex: Male
  Weight: 90 kg

DRUGS (9)
  1. BEVACIZUMAB [Suspect]
     Route: 042
     Dates: start: 20090514, end: 20090601
  2. KEVATRIL [Concomitant]
  3. TARGIN [Concomitant]
  4. NOVALGIN [Concomitant]
  5. ATROPIN [Concomitant]
  6. FORTECORTIN [Concomitant]
  7. FOLFIRI REGIMEN [Concomitant]
  8. CETUXIMAB [Concomitant]
  9. LAXOBERAL [Concomitant]

REACTIONS (1)
  - BLADDER PERFORATION [None]
